FAERS Safety Report 24920317 (Version 1)
Quarter: 2025Q1

REPORT INFORMATION
  Report Type: Report from Study
  Country: US (occurrence: US)
  Receive Date: 20250204
  Receipt Date: 20250204
  Transmission Date: 20250408
  Serious: No
  Sender: EXELIXIS
  Company Number: US-EXELIXIS-CABO-24073633

PATIENT
  Sex: Male
  Weight: 83.628 kg

DRUGS (1)
  1. CABOMETYX [Suspect]
     Active Substance: CABOZANTINIB S-MALATE
     Indication: Renal cancer
     Dosage: 40 MG, QD
     Route: 048
     Dates: start: 20221230

REACTIONS (9)
  - Blood pressure systolic increased [Unknown]
  - Headache [Unknown]
  - Fatigue [Unknown]
  - Asthenia [Unknown]
  - Dry skin [Unknown]
  - Insomnia [Unknown]
  - Rhinorrhoea [Unknown]
  - Skin atrophy [Unknown]
  - Contusion [Unknown]
